FAERS Safety Report 8077383-7 (Version None)
Quarter: 2012Q1

REPORT INFORMATION
  Report Type: 
  Country: None (occurrence: None)
  Receive Date: 20120127
  Receipt Date: 20120124
  Transmission Date: 20120608
  Serious: Yes (Death)
  Sender: FDA-Public Use
  Company Number: PHHY2012NG006609

PATIENT
  Age: 60 Year
  Sex: Male

DRUGS (3)
  1. RASILEZ [Suspect]
     Indication: HYPERTENSION
     Dosage: 150 MG DAILY
     Route: 048
     Dates: start: 20110920
  2. INSULIN [Concomitant]
     Indication: DIABETES MELLITUS
  3. DIOVAN HCT [Suspect]
     Dosage: 1 DF
     Dates: start: 20110920

REACTIONS (1)
  - RENAL FAILURE [None]
